FAERS Safety Report 8484239-4 (Version None)
Quarter: 2012Q3

REPORT INFORMATION
  Report Type: 
  Country: None (occurrence: None)
  Receive Date: 20120703
  Receipt Date: 20120613
  Transmission Date: 20120928
  Serious: Yes (Death, Other)
  Sender: FDA-Public Use
  Company Number: HK-RANBAXY-2011RR-45729

PATIENT
  Age: 63 Year
  Sex: Female

DRUGS (4)
  1. DILTIAZEM HYDROCHOLORIDE [Interacting]
     Indication: HYPERTENSION
     Dosage: 90 MG, BID
     Route: 065
  2. SIMVASTATIN [Suspect]
     Indication: TYPE IIA HYPERLIPIDAEMIA
     Dosage: 40 MG/DAY
     Route: 065
  3. ENALAPRIL MALEATE [Concomitant]
     Indication: HYPERTENSION
     Route: 065
  4. SIMVASTATIN [Interacting]
     Dosage: 80 MG/DAY
     Route: 065

REACTIONS (3)
  - BLOOD CREATINE PHOSPHOKINASE INCREASED [None]
  - DRUG INTERACTION [None]
  - MUSCLE DISORDER [None]
